FAERS Safety Report 17669841 (Version 1)
Quarter: 2020Q2

REPORT INFORMATION
  Report Type: Spontaneous
  Country: US (occurrence: US)
  Receive Date: 20200415
  Receipt Date: 20200415
  Transmission Date: 20200713
  Serious: Yes (Other)
  Sender: FDA-Public Use
  Company Number: US-PFIZER INC-2020151312

PATIENT
  Age: 65 Year
  Sex: Male
  Weight: 124 kg

DRUGS (20)
  1. LIPITOR [Concomitant]
     Active Substance: ATORVASTATIN CALCIUM
     Dosage: 20 MG, DAILY
  2. GLUCOPHAGE XR [Concomitant]
     Active Substance: METFORMIN HYDROCHLORIDE
     Dosage: 1500 MG, 1X/DAY [TAKE 2 TABLETS (1,500 MG TOTAL) BY MOUTH AT BEDTIME]
     Route: 048
  3. AMOXIL [Concomitant]
     Active Substance: AMOXICILLIN
     Indication: DENTAL OPERATION
     Dosage: 1000 MG, AS NEEDED (TAKE 2 TABLETS BY MOUTH DAILY AS NEEDED)
     Route: 048
  4. VYNDAQEL [Suspect]
     Active Substance: TAFAMIDIS MEGLUMINE
     Indication: LEFT VENTRICULAR FAILURE
  5. ASPIRIN 81 [Concomitant]
     Active Substance: ASPIRIN
     Dosage: 81 MG, DAILY
     Route: 048
  6. PRILOSEC [Concomitant]
     Active Substance: OMEPRAZOLE MAGNESIUM
     Dosage: 40 MG, DAILY
     Route: 048
  7. VENTOLIN HFA [Concomitant]
     Active Substance: ALBUTEROL SULFATE
     Indication: WHEEZING
     Dosage: 90 UG, AS NEEDED [90 MCG/ACTUATION INHALER, INHALE 1 PUFF EVERY 4 (FOUR) HOURS AS NEEDED]
     Route: 055
  8. VYNDAMAX [Suspect]
     Active Substance: TAFAMIDIS
     Indication: LEFT VENTRICULAR FAILURE
  9. GLUCOSAMINE + CHONDROITIN + MSM [Concomitant]
     Dosage: 1 DF, 2X/DAY
     Route: 048
  10. NASACORT [Concomitant]
     Active Substance: TRIAMCINOLONE ACETONIDE
     Dosage: 220 UG, 1X/DAY [55 MCG/ACTUATION NASAL SPRAY, ADMINISTER 2 SPRAYS INTO EACH NOSTRIL AT BEDTIME]
     Route: 045
  11. TADALAFIL. [Concomitant]
     Active Substance: TADALAFIL
     Dosage: UNK, AS NEEDED, (TAKE 0.5 EACH BY MOUTH AS NEEDED)
     Route: 048
  12. TADALAFIL. [Concomitant]
     Active Substance: TADALAFIL
     Dosage: UNK [40MG GEL ABOUT 1/2 SQUARE]
  13. VYNDAMAX [Suspect]
     Active Substance: TAFAMIDIS
     Indication: CARDIAC AMYLOIDOSIS
     Dosage: 61 MG, DAILY
     Route: 048
     Dates: start: 20200220
  14. CLARINEX [Concomitant]
     Active Substance: DESLORATADINE
     Dosage: 5 MG, DAILY
  15. DEMADEX [Concomitant]
     Active Substance: TORSEMIDE
     Dosage: 20 MG, ALTERNATE DAY [20 MG ORAL EVERY OTHER DAY]
     Route: 048
  16. PROVENTIL HFA [Concomitant]
     Active Substance: ALBUTEROL SULFATE
     Indication: WHEEZING
     Dosage: 90 UG, AS NEEDED [90 MCG/ACTUATION INHALER, INHALE 1 PUFF EVERY 4 (FOUR) HOURS AS NEEDED]
     Route: 055
  17. SINGULAIR [Concomitant]
     Active Substance: MONTELUKAST SODIUM
     Dosage: 10 MG, 1X/DAY [TAKE 1 TABLET (10 MG TOTAL) BY MOUTH AT BEDTIME]
     Route: 048
  18. DEMADEX [Concomitant]
     Active Substance: TORSEMIDE
     Dosage: 20 MG, AS NEEDED, (TAKE 1 TABLET (20 MG TOTAL) BY MOUTH DAILY AS NEEDED)
     Route: 048
     Dates: start: 20200220
  19. VYNDAQEL [Suspect]
     Active Substance: TAFAMIDIS MEGLUMINE
     Indication: CARDIAC AMYLOIDOSIS
     Dosage: 80 MG, DAILY [20 MG CAPSULE, TAKE 4 CAPSULES (80 MG TOTAL) BY MOUTH DAILY]
     Route: 048
  20. MICARDIS HCT [Concomitant]
     Active Substance: HYDROCHLOROTHIAZIDE\TELMISARTAN
     Dosage: 1 DF, DAILY, (80-12.5 MG PER TABLET, TAKE 1 TABLET BY MOUTH DAILY)
     Route: 048

REACTIONS (3)
  - Sinusitis [Unknown]
  - Condition aggravated [Unknown]
  - Cardiac failure [Unknown]
